FAERS Safety Report 4357273-3 (Version None)
Quarter: 2004Q2

REPORT INFORMATION
  Report Type: 
  Country: None (occurrence: None)
  Receive Date: 20040513
  Receipt Date: 20040505
  Transmission Date: 20050107
  Serious: Yes (Other)
  Sender: FDA-Public Use
  Company Number: PHBS2004BR06075

PATIENT
  Age: 34 Year
  Sex: Male
  Weight: 56 kg

DRUGS (2)
  1. MELLARIL [Suspect]
     Indication: DEPRESSION
     Dosage: 75 MG/D
     Route: 048
     Dates: start: 20040504, end: 20040504
  2. TEGRETOL [Suspect]
     Indication: AGITATION
     Dosage: 400 MG/D
     Route: 048
     Dates: start: 20040504, end: 20040504

REACTIONS (5)
  - AGITATION [None]
  - FEAR [None]
  - INSOMNIA [None]
  - NASAL CONGESTION [None]
  - TACHYCARDIA [None]
